FAERS Safety Report 5854350-2 (Version None)
Quarter: 2008Q3

REPORT INFORMATION
  Report Type: 
  Country: None (occurrence: None)
  Receive Date: 20080822
  Receipt Date: 20080814
  Transmission Date: 20090109
  Serious: No
  Sender: FDA-Public Use
  Company Number: US-BOEHRINGER INGELHEIM GMBH, GERMANY-2008-BP-12898BP

PATIENT
  Age: 73 Year
  Sex: Male

DRUGS (5)
  1. FLOMAX [Suspect]
     Indication: BENIGN PROSTATIC HYPERPLASIA
     Route: 048
     Dates: start: 20030101
  2. FLOMAX [Suspect]
     Indication: NEUROGENIC BLADDER
  3. SINEMET [Suspect]
     Indication: PARKINSON'S DISEASE
  4. AVODART [Concomitant]
     Indication: BENIGN PROSTATIC HYPERPLASIA
  5. VITAMIN D [Concomitant]
     Indication: OSTEOPOROSIS

REACTIONS (5)
  - BACK PAIN [None]
  - BRADYCARDIA [None]
  - DENTAL CARIES [None]
  - OSTEOPOROSIS [None]
  - VISION BLURRED [None]
